FAERS Safety Report 8438609-0 (Version None)
Quarter: 2012Q2

REPORT INFORMATION
  Report Type: 
  Country: None (occurrence: None)
  Receive Date: 20120615
  Receipt Date: 20120608
  Transmission Date: 20120825
  Serious: Yes (Other)
  Sender: FDA-Public Use
  Company Number: US-PFIZER INC-2009314337

PATIENT
  Sex: Female

DRUGS (12)
  1. ROBAXIN [Concomitant]
     Dosage: 300 MG, 3X/DAY
     Route: 048
  2. DILANTIN KAPSEAL [Suspect]
     Indication: CONVULSION
     Dosage: 100 MG, 3X/DAY
     Route: 048
  3. ZOLOFT [Concomitant]
     Indication: ANXIETY
  4. DILANTIN [Suspect]
     Indication: CONVULSION
     Dosage: 100 MG, 4X/DAY
     Route: 048
     Dates: start: 20070802
  5. NEURONTIN [Concomitant]
     Indication: FIBROMYALGIA
     Dosage: 600 MG, 3X/DAY
     Route: 048
  6. PROTONIX [Concomitant]
     Indication: GASTROOESOPHAGEAL REFLUX DISEASE
     Dosage: 40 MG, 1X/DAY
     Route: 048
  7. XANAX [Concomitant]
     Indication: ANXIETY
     Dosage: 1 MG, 3X/DAY
     Route: 048
  8. DILANTIN KAPSEAL [Suspect]
     Dosage: 100 MG, UNK
     Route: 048
     Dates: start: 20080808
  9. DARVOCET [Concomitant]
     Indication: PAIN
     Dosage: UNK
     Route: 048
  10. AMITRIPTYLINE [Concomitant]
     Dosage: 25 MG, 1X/DAY
     Route: 048
  11. HYDROCHLOROTHIAZIDE [Concomitant]
     Dosage: 25 MG, 1X/DAY
     Route: 048
  12. ZOLOFT [Concomitant]
     Indication: DEPRESSION
     Dosage: 100 MG, 1X/DAY
     Route: 048

REACTIONS (1)
  - STEVENS-JOHNSON SYNDROME [None]
